FAERS Safety Report 9656058 (Version 2)
Quarter: 2013Q4

REPORT INFORMATION
  Report Type: Spontaneous
  Country: FR (occurrence: FR)
  Receive Date: 20131030
  Receipt Date: 20131031
  Transmission Date: 20140711
  Serious: Yes (Life-Threatening, Hospitalization)
  Sender: FDA-Public Use
  Company Number: FR-JNJFOC-20131012350

PATIENT
  Age: 60 Year
  Sex: Male

DRUGS (7)
  1. HALDOL DECANOAS [Suspect]
     Indication: BIPOLAR I DISORDER
     Route: 030
     Dates: start: 20020928
  2. HALDOL DECANOAS [Suspect]
     Indication: BIPOLAR I DISORDER
     Dosage: 5AMPOULES
     Route: 030
     Dates: end: 20020918
  3. LOXAPAC [Suspect]
     Indication: PRODUCT USED FOR UNKNOWN INDICATION
     Route: 048
  4. TEMESTA [Suspect]
     Indication: PRODUCT USED FOR UNKNOWN INDICATION
     Route: 048
     Dates: end: 20020924
  5. TEMESTA [Suspect]
     Indication: PRODUCT USED FOR UNKNOWN INDICATION
     Route: 048
     Dates: start: 20020928
  6. LEPTICUR [Suspect]
     Indication: PRODUCT USED FOR UNKNOWN INDICATION
     Route: 048
     Dates: end: 20020924
  7. LEPTICUR [Suspect]
     Indication: PRODUCT USED FOR UNKNOWN INDICATION
     Route: 048
     Dates: start: 20020928

REACTIONS (7)
  - Coma [Recovered/Resolved]
  - Leukopenia [Recovered/Resolved]
  - Thrombocytopenia [Recovered/Resolved]
  - Hypothermia [Recovered/Resolved]
  - Lymphopenia [Recovered/Resolved]
  - Bone marrow failure [Unknown]
  - Hypoglycaemia [Unknown]
